FAERS Safety Report 9157890 (Version 1)
Quarter: 2013Q1

REPORT INFORMATION
  Report Type: Spontaneous
  Country: IT (occurrence: None)
  Receive Date: 20130213
  Receipt Date: 20130213
  Transmission Date: 20140127
  Serious: Yes (Hospitalization)
  Sender: FDA-Public Use
  Company Number: AUR-APL-2013-01309

PATIENT
  Sex: Female

DRUGS (1)
  1. LEVOFLOXACIN (LEVOFLOXACIN) [Suspect]
     Indication: PRODUCT USED FOR UNKNOWN INDICATION
     Dosage: UNKNOWN

REACTIONS (1)
  - Rash maculo-papular [None]
